FAERS Safety Report 13530403 (Version 1)
Quarter: 2017Q2

REPORT INFORMATION
  Report Type: Spontaneous
  Country: US (occurrence: US)
  Receive Date: 20170509
  Receipt Date: 20170509
  Transmission Date: 20170830
  Serious: No
  Sender: FDA-Public Use
  Company Number: None

PATIENT
  Age: 83 Year
  Sex: Male
  Weight: 79.5 kg

DRUGS (1)
  1. MEGESTROL [Suspect]
     Active Substance: MEGESTROL
     Indication: DEEP VEIN THROMBOSIS
     Route: 048
     Dates: start: 20160526, end: 20160811

REACTIONS (1)
  - Thrombosis [None]

NARRATIVE: CASE EVENT DATE: 20160811
